FAERS Safety Report 5257931-2 (Version None)
Quarter: 2007Q1

REPORT INFORMATION
  Report Type: 
  Country: None (occurrence: None)
  Receive Date: 20070307
  Receipt Date: 20061025
  Transmission Date: 20070707
  Serious: No
  Sender: FDA-Public Use
  Company Number: US-GLAXOSMITHKLINE-A0624888A

PATIENT
  Age: 41 Year
  Sex: Female

DRUGS (8)
  1. REQUIP [Suspect]
     Indication: RESTLESS LEGS SYNDROME
     Dosage: 1MG PER DAY
     Route: 048
     Dates: start: 20061013
  2. MEDROXYPROGESTERONE [Concomitant]
  3. ASPIRIN [Concomitant]
  4. NEURONTIN [Concomitant]
  5. VITAMIN E [Concomitant]
  6. FLINTSTONE VITAMINS [Concomitant]
  7. ANTIACIDS ALUMINIUM HYDROXIDE [Concomitant]
  8. DANAZOL [Concomitant]

REACTIONS (1)
  - HYPOAESTHESIA [None]
